FAERS Safety Report 13149879 (Version 2)
Quarter: 2017Q1

REPORT INFORMATION
  Report Type: Spontaneous
  Country: FR (occurrence: FR)
  Receive Date: 20170125
  Receipt Date: 20170327
  Transmission Date: 20170428
  Serious: Yes (Life-Threatening)
  Sender: FDA-Public Use
  Company Number: FR-JNJFOC-20170118651

PATIENT
  Age: 10 Year
  Sex: Male
  Weight: 35 kg

DRUGS (8)
  1. TERCIAN [Concomitant]
     Active Substance: CYAMEMAZINE
     Dosage: 35 DROPS
     Route: 065
     Dates: end: 20160701
  2. NOZINAN [Concomitant]
     Active Substance: LEVOMEPROMAZINE
     Route: 065
     Dates: start: 20160701, end: 20160911
  3. CONCERTA [Suspect]
     Active Substance: METHYLPHENIDATE HYDROCHLORIDE
     Indication: ATTENTION DEFICIT/HYPERACTIVITY DISORDER
     Route: 048
     Dates: start: 20161022, end: 20161213
  4. CONCERTA [Suspect]
     Active Substance: METHYLPHENIDATE HYDROCHLORIDE
     Indication: ATTENTION DEFICIT/HYPERACTIVITY DISORDER
     Route: 048
  5. CONCERTA [Suspect]
     Active Substance: METHYLPHENIDATE HYDROCHLORIDE
     Indication: ATTENTION DEFICIT/HYPERACTIVITY DISORDER
     Route: 048
  6. ZUCLOPENTHIXOL [Suspect]
     Active Substance: ZUCLOPENTHIXOL
     Indication: ATTENTION DEFICIT/HYPERACTIVITY DISORDER
     Dosage: 10 DROPS
     Route: 048
     Dates: start: 20161214, end: 20161216
  7. DEPAKOTE [Concomitant]
     Active Substance: DIVALPROEX SODIUM
     Route: 065
     Dates: end: 20160913
  8. VALIUM [Concomitant]
     Active Substance: DIAZEPAM
     Dosage: 90 DROPS
     Route: 065

REACTIONS (5)
  - Aggression [Unknown]
  - Torticollis [Recovered/Resolved]
  - Laryngospasm [Recovered/Resolved]
  - Bronchospasm [Recovered/Resolved]
  - Dystonia [Recovered/Resolved]

NARRATIVE: CASE EVENT DATE: 20161216
